FAERS Safety Report 23600654 (Version 2)
Quarter: 2025Q2

REPORT INFORMATION
  Report Type: Report from Study
  Country: US (occurrence: US)
  Receive Date: 20240306
  Receipt Date: 20250626
  Transmission Date: 20250716
  Serious: Yes (Other)
  Sender: MYLAN
  Company Number: US-MYLANLABS-2024M1020340

PATIENT
  Sex: Male

DRUGS (20)
  1. DOXORUBICIN [Suspect]
     Active Substance: DOXORUBICIN
     Indication: Primary mediastinal large B-cell lymphoma
  2. DOXORUBICIN [Suspect]
     Active Substance: DOXORUBICIN
     Route: 065
  3. DOXORUBICIN [Suspect]
     Active Substance: DOXORUBICIN
     Route: 065
  4. DOXORUBICIN [Suspect]
     Active Substance: DOXORUBICIN
  5. PREDNISONE [Suspect]
     Active Substance: PREDNISONE
     Indication: Primary mediastinal large B-cell lymphoma
  6. PREDNISONE [Suspect]
     Active Substance: PREDNISONE
     Route: 065
  7. PREDNISONE [Suspect]
     Active Substance: PREDNISONE
     Route: 065
  8. PREDNISONE [Suspect]
     Active Substance: PREDNISONE
  9. RITUXIMAB [Suspect]
     Active Substance: RITUXIMAB
     Indication: Primary mediastinal large B-cell lymphoma
  10. RITUXIMAB [Suspect]
     Active Substance: RITUXIMAB
     Route: 065
  11. RITUXIMAB [Suspect]
     Active Substance: RITUXIMAB
     Route: 065
  12. RITUXIMAB [Suspect]
     Active Substance: RITUXIMAB
  13. CYCLOPHOSPHAMIDE [Suspect]
     Active Substance: CYCLOPHOSPHAMIDE
     Indication: Primary mediastinal large B-cell lymphoma
  14. CYCLOPHOSPHAMIDE [Suspect]
     Active Substance: CYCLOPHOSPHAMIDE
     Route: 065
  15. CYCLOPHOSPHAMIDE [Suspect]
     Active Substance: CYCLOPHOSPHAMIDE
     Route: 065
  16. CYCLOPHOSPHAMIDE [Suspect]
     Active Substance: CYCLOPHOSPHAMIDE
  17. VINCRISTINE [Suspect]
     Active Substance: VINCRISTINE
     Indication: Primary mediastinal large B-cell lymphoma
  18. VINCRISTINE [Suspect]
     Active Substance: VINCRISTINE
     Route: 065
  19. VINCRISTINE [Suspect]
     Active Substance: VINCRISTINE
     Route: 065
  20. VINCRISTINE [Suspect]
     Active Substance: VINCRISTINE

REACTIONS (4)
  - Febrile neutropenia [Unknown]
  - Deep vein thrombosis [Unknown]
  - Ejection fraction decreased [Unknown]
  - Pleural effusion [Unknown]
